FAERS Safety Report 21107572 (Version 1)
Quarter: 2022Q3

REPORT INFORMATION
  Report Type: Spontaneous
  Country: DE (occurrence: DE)
  Receive Date: 20220720
  Receipt Date: 20220720
  Transmission Date: 20221027
  Serious: Yes (Other)
  Sender: FDA-Public Use
  Company Number: DE-EMBRYOTOX-202115226

PATIENT
  Sex: Female
  Weight: 2.814 kg

DRUGS (8)
  1. VENLAFAXINE HCL [Suspect]
     Active Substance: VENLAFAXINE HYDROCHLORIDE
     Indication: Depression
     Dosage: 150 MG/DL
     Route: 064
  2. VENLAFAXINE HCL [Suspect]
     Active Substance: VENLAFAXINE HYDROCHLORIDE
     Dosage: 150 MG/DL
     Route: 063
  3. TAVOR (LORAZEPAM) [Concomitant]
     Active Substance: LORAZEPAM
     Indication: Agitation
     Dosage: 1MG/DL
     Route: 063
  4. JOD [Concomitant]
     Indication: Nutritional supplementation
     Dosage: 200 MG/DL
     Route: 063
  5. PREDNISOLONE [Concomitant]
     Active Substance: PREDNISOLONE
     Indication: Hypersensitivity
     Route: 063
  6. CETIRIZINE [Concomitant]
     Active Substance: CETIRIZINE HYDROCHLORIDE
     Indication: Hypersensitivity
     Dosage: 10 MG/DL
     Route: 063
  7. PANTOPRAZOLE SODIUM [Concomitant]
     Active Substance: PANTOPRAZOLE SODIUM
     Indication: Gastritis prophylaxis
     Dosage: 40 MG/DL
     Route: 063
  8. METHYLDOPA [Concomitant]
     Active Substance: METHYLDOPA
     Indication: Pre-eclampsia
     Dosage: 1000 MG/DL
     Route: 063

REACTIONS (6)
  - Maternal exposure during pregnancy [Unknown]
  - Exposure via breast milk [Recovered/Resolved]
  - Hypotonia neonatal [Recovered/Resolved]
  - Premature baby [Unknown]
  - Selective eating disorder [Recovered/Resolved]
  - Somnolence neonatal [Recovered/Resolved]
